FAERS Safety Report 6480894-9 (Version None)
Quarter: 2009Q4

REPORT INFORMATION
  Report Type: 
  Country: None (occurrence: None)
  Receive Date: 20091208
  Receipt Date: 20091127
  Transmission Date: 20100525
  Serious: Yes (Other)
  Sender: FDA-Public Use
  Company Number: PHHY2009CA52558

PATIENT
  Sex: Male

DRUGS (1)
  1. ACLASTA [Suspect]
     Indication: OSTEITIS DEFORMANS
     Dosage: UNK
     Dates: start: 20081017

REACTIONS (2)
  - FALL [None]
  - PARALYSIS [None]
